FAERS Safety Report 18207813 (Version 1)
Quarter: 2020Q3

REPORT INFORMATION
  Report Type: Spontaneous
  Country: PT (occurrence: PT)
  Receive Date: 20200828
  Receipt Date: 20200828
  Transmission Date: 20201103
  Serious: Yes (Life-Threatening)
  Sender: FDA-Public Use
  Company Number: PT-HIKMA PHARMACEUTICALS USA INC.-PT-H14001-20-51988

PATIENT
  Age: 34 Year
  Sex: Female

DRUGS (2)
  1. METOCLOPRAMIDE. [Concomitant]
     Active Substance: METOCLOPRAMIDE
     Indication: PRODUCT USED FOR UNKNOWN INDICATION
     Dosage: UNKNOWN
     Route: 065
  2. CEFAZOLIN [Suspect]
     Active Substance: CEFAZOLIN
     Indication: CAESAREAN SECTION
     Dosage: UNKNOWN
     Route: 065
     Dates: start: 20160328, end: 20160328

REACTIONS (4)
  - Laryngeal oedema [Recovered/Resolved]
  - Rash [Recovered/Resolved]
  - Anxiety [Recovered/Resolved]
  - Laryngeal dyspnoea [Recovered/Resolved]

NARRATIVE: CASE EVENT DATE: 20160328
